FAERS Safety Report 20994091 (Version 1)
Quarter: 2022Q2

REPORT INFORMATION
  Report Type: Spontaneous
  Country: US (occurrence: US)
  Receive Date: 20220622
  Receipt Date: 20220622
  Transmission Date: 20220721
  Serious: No
  Sender: FDA-Public Use
  Company Number: US-BRISTOL-MYERS SQUIBB COMPANY-2022-059615

PATIENT
  Age: 69 Year
  Sex: Male

DRUGS (1)
  1. REVLIMID [Suspect]
     Active Substance: LENALIDOMIDE
     Indication: Plasma cell myeloma
     Dosage: FREQUENCY: EVERY DAY FOR 14 DAYS ON THEN 14 DAYS OFF
     Route: 048
     Dates: start: 20210109

REACTIONS (2)
  - COVID-19 [Recovered/Resolved]
  - Intentional product use issue [Unknown]
